FAERS Safety Report 6227139-2 (Version None)
Quarter: 2009Q2

REPORT INFORMATION
  Report Type: 
  Country: None (occurrence: None)
  Receive Date: 20090610
  Receipt Date: 20090528
  Transmission Date: 20091009
  Serious: Yes (Life-Threatening, Hospitalization)
  Sender: FDA-Public Use
  Company Number: GB-WYE-H09603309

PATIENT
  Age: 44 Year
  Sex: Female

DRUGS (3)
  1. CORDARONE [Suspect]
     Indication: VENTRICULAR FIBRILLATION
  2. ISOFLURANE [Suspect]
     Indication: ANAESTHESIA
  3. SOTALOL HCL [Suspect]
     Indication: SUPRAVENTRICULAR TACHYCARDIA

REACTIONS (9)
  - ANAESTHETIC COMPLICATION [None]
  - BRADYCARDIA [None]
  - CATHETER RELATED COMPLICATION [None]
  - DRUG LEVEL ABOVE THERAPEUTIC [None]
  - ELECTROCARDIOGRAM QT PROLONGED [None]
  - HAEMODIALYSIS [None]
  - HYPOKALAEMIA [None]
  - VENTRICULAR FIBRILLATION [None]
  - VENTRICULAR TACHYCARDIA [None]
